FAERS Safety Report 8732359 (Version 2)
Quarter: 2015Q4

REPORT INFORMATION
  Report Type: Spontaneous
  Country: US (occurrence: US)
  Receive Date: 20120820
  Receipt Date: 20151204
  Transmission Date: 20160305
  Serious: Yes (Congenital Anomaly, Other)
  Sender: FDA-Public Use
  Company Number: US-GLAXOSMITHKLINE-A0990121A

PATIENT
  Age: 0 Day
  Sex: Male

DRUGS (2)
  1. PROMETHAZINE HYDROCHLORIDE. [Suspect]
     Active Substance: PROMETHAZINE HYDROCHLORIDE
     Indication: PRODUCT USED FOR UNKNOWN INDICATION
     Dosage: 12.5 MG, UNK
     Dates: start: 20030318
  2. PAXIL [Suspect]
     Active Substance: PAROXETINE HYDROCHLORIDE
     Indication: DEPRESSION
     Dosage: 20 MG, QD
     Route: 064

REACTIONS (13)
  - Cardiac murmur [Unknown]
  - Eustachian tube dysfunction [Unknown]
  - Cleft lip and palate [Unknown]
  - Foetal exposure during pregnancy [Unknown]
  - Otitis media chronic [Unknown]
  - Velopharyngeal incompetence [Unknown]
  - Hydrocephalus [Unknown]
  - Speech disorder [Unknown]
  - Arnold-Chiari malformation [Unknown]
  - Nose deformity [Unknown]
  - Spina bifida [Unknown]
  - Fistula [Unknown]
  - Developmental delay [Unknown]

NARRATIVE: CASE EVENT DATE: 20030318
